FAERS Safety Report 25571273 (Version 1)
Quarter: 2025Q3

REPORT INFORMATION
  Report Type: Spontaneous
  Country: US (occurrence: US)
  Receive Date: 20250717
  Receipt Date: 20250717
  Transmission Date: 20251021
  Serious: No
  Sender: TARO
  Company Number: US-TARO PHARMACEUTICALS USA INC.-2025TAR01212

PATIENT

DRUGS (1)
  1. CLINDAMYCIN AND BENZOYL PEROXIDE [Suspect]
     Active Substance: BENZOYL PEROXIDE\CLINDAMYCIN PHOSPHATE
     Indication: Acne
     Dosage: APPLY PEA SIZE AMOUNT ONCE DAILY TO SPOT AS DIRECTED AS NEEDED
     Route: 061
     Dates: start: 202503

REACTIONS (1)
  - Product physical consistency issue [Unknown]
